FAERS Safety Report 8612946-9 (Version None)
Quarter: 2012Q3

REPORT INFORMATION
  Report Type: 
  Country: None (occurrence: None)
  Receive Date: 20120822
  Receipt Date: 20120821
  Transmission Date: 20120928
  Serious: Yes (Other)
  Sender: FDA-Public Use
  Company Number: CHPA2012US015946

PATIENT
  Age: 66 Year
  Sex: Female

DRUGS (2)
  1. NAPROXEN (ALEVE) [Concomitant]
     Indication: ARTHRITIS
  2. VOLTAREN [Suspect]
     Indication: VARICOSE VEIN
     Dosage: UNK, PRN
     Route: 061

REACTIONS (4)
  - CHONDROPATHY [None]
  - ARTHRITIS [None]
  - DRUG INEFFECTIVE FOR UNAPPROVED INDICATION [None]
  - DRUG INEFFECTIVE [None]
